FAERS Safety Report 9612535 (Version 1)
Quarter: 2013Q4

REPORT INFORMATION
  Report Type: Spontaneous
  Country: SE (occurrence: SE)
  Receive Date: 20131010
  Receipt Date: 20131010
  Transmission Date: 20140711
  Serious: Yes (Other)
  Sender: FDA-Public Use
  Company Number: SE-ASTRAZENECA-2013SE73802

PATIENT
  Age: 43 Year
  Sex: Male

DRUGS (4)
  1. OMEPRAZOL [Suspect]
     Route: 048
     Dates: start: 2007, end: 20130522
  2. ALVEDON [Concomitant]
  3. ZOMIG [Concomitant]
  4. UNSPECIFIED [Concomitant]

REACTIONS (1)
  - Polyneuropathy [Not Recovered/Not Resolved]
